FAERS Safety Report 16098041 (Version 1)
Quarter: 2019Q1

REPORT INFORMATION
  Report Type: Report from Study
  Country: None (occurrence: US)
  Receive Date: 20190320
  Receipt Date: 20190320
  Transmission Date: 20190418
  Serious: Yes (Hospitalization)
  Sender: FDA-Public Use
  Company Number: US-ABBVIE-18K-163-2555421-00

PATIENT
  Sex: Female

DRUGS (1)
  1. HUMIRA [Suspect]
     Active Substance: ADALIMUMAB
     Indication: HIDRADENITIS
     Route: 058
     Dates: end: 201811

REACTIONS (4)
  - Hidradenitis [Recovering/Resolving]
  - Hepatic steatosis [Recovering/Resolving]
  - Cyst [Recovering/Resolving]
  - Injection site pain [Recovering/Resolving]
